FAERS Safety Report 23490921 (Version 1)
Quarter: 2024Q1

REPORT INFORMATION
  Report Type: Spontaneous
  Country: US (occurrence: None)
  Receive Date: 20240206
  Receipt Date: 20240206
  Transmission Date: 20240409
  Serious: No
  Sender: FDA-Public Use
  Company Number: US-ROCHE-3422285

PATIENT
  Age: 15 Year
  Sex: Female

DRUGS (2)
  1. NUTROPIN AQ [Suspect]
     Active Substance: SOMATROPIN
     Indication: Product used for unknown indication
     Route: 058
     Dates: start: 202308
  2. NUTROPIN AQ [Suspect]
     Active Substance: SOMATROPIN

REACTIONS (3)
  - Wrong technique in product usage process [Unknown]
  - Product dose omission issue [Unknown]
  - No adverse event [Unknown]

NARRATIVE: CASE EVENT DATE: 20230912
